FAERS Safety Report 16630373 (Version 2)
Quarter: 2019Q3

REPORT INFORMATION
  Report Type: Report from Study
  Country: US (occurrence: US)
  Receive Date: 20190725
  Receipt Date: 20190802
  Transmission Date: 20191004
  Serious: Yes (Death, Life-Threatening, Hospitalization)
  Sender: FDA-Public Use
  Company Number: US-UCBSA-2019020291

PATIENT
  Sex: Male

DRUGS (1)
  1. LACOSAMIDE. [Suspect]
     Active Substance: LACOSAMIDE
     Indication: EPILEPSY
     Dosage: 50 MILLIGRAM, 2X/DAY (BID)
     Route: 048

REACTIONS (5)
  - Cerebrovascular accident [Unknown]
  - Pneumonia [Unknown]
  - Hallucination [Unknown]
  - Lethargy [Unknown]
  - Renal failure [Fatal]

NARRATIVE: CASE EVENT DATE: 2019
